FAERS Safety Report 24434664 (Version 7)
Quarter: 2025Q2

REPORT INFORMATION
  Report Type: Spontaneous
  Country: CO (occurrence: CO)
  Receive Date: 20241014
  Receipt Date: 20250512
  Transmission Date: 20250716
  Serious: Yes (Other)
  Sender: PFIZER
  Company Number: CO-PFIZER INC-PV202400130491

PATIENT
  Age: 11 Year
  Sex: Male
  Weight: 21 kg

DRUGS (1)
  1. GENOTROPIN [Suspect]
     Active Substance: SOMATROPIN
     Indication: Growth hormone deficiency
     Dosage: 0.8 MG, DAILY
     Route: 058
     Dates: start: 2024

REACTIONS (8)
  - Product preparation issue [Unknown]
  - Drug administered in wrong device [Unknown]
  - Incorrect dose administered by device [Unknown]
  - Accidental overdose [Unknown]
  - Device use error [Unknown]
  - Drug dose omission by device [Unknown]
  - Device mechanical issue [Unknown]
  - Device leakage [Unknown]

NARRATIVE: CASE EVENT DATE: 20240901
